FAERS Safety Report 12365190 (Version 1)
Quarter: 2016Q2

REPORT INFORMATION
  Report Type: Spontaneous
  Country: US (occurrence: US)
  Receive Date: 20160513
  Receipt Date: 20160513
  Transmission Date: 20160815
  Serious: Yes (Other)
  Sender: FDA-Public Use
  Company Number: US-UNICHEM LABORATORIES LIMITED-UCM201605-000091

PATIENT
  Age: 35 Year
  Sex: Male

DRUGS (2)
  1. LAMOTRIGINE. [Suspect]
     Active Substance: LAMOTRIGINE
     Indication: PARTIAL SEIZURES
  2. FELBAMATE. [Concomitant]
     Active Substance: FELBAMATE
     Indication: PARTIAL SEIZURES

REACTIONS (2)
  - Seizure [Unknown]
  - Toxicity to various agents [Unknown]
